FAERS Safety Report 6788712-6 (Version None)
Quarter: 2010Q2

REPORT INFORMATION
  Report Type: 
  Country: None (occurrence: None)
  Receive Date: 20100623
  Receipt Date: 20080519
  Transmission Date: 20101027
  Serious: Yes (Hospitalization, Other)
  Sender: FDA-Public Use
  Company Number: US-PFIZER INC-2008026855

PATIENT
  Sex: Male
  Weight: 91.6 kg

DRUGS (3)
  1. GEODON [Suspect]
     Indication: BIPOLAR DISORDER
  2. CONCERTA [Concomitant]
  3. BUSPAR [Concomitant]

REACTIONS (2)
  - TYPE 2 DIABETES MELLITUS [None]
  - WEIGHT DECREASED [None]
